FAERS Safety Report 5226963-2 (Version None)
Quarter: 2007Q1

REPORT INFORMATION
  Report Type: 
  Country: None (occurrence: None)
  Receive Date: 20070202
  Receipt Date: 20070123
  Transmission Date: 20070707
  Serious: Yes (Hospitalization)
  Sender: FDA-Public Use
  Company Number: PHBS2007BE01375

PATIENT
  Age: 65 Year
  Sex: Female

DRUGS (4)
  1. STALEVO 100 [Suspect]
     Indication: PARKINSON'S DISEASE
     Dosage: 100 MG, QID
     Route: 048
     Dates: start: 20060301, end: 20070115
  2. REQUIP [Concomitant]
     Dosage: 5 MG, QID
  3. REQUIP [Concomitant]
     Dosage: 2 MG, 5QD
  4. PROLOPA [Concomitant]

REACTIONS (5)
  - DYSPNOEA [None]
  - HYPERVENTILATION [None]
  - HYPOKINESIA [None]
  - MUSCULOSKELETAL STIFFNESS [None]
  - WEIGHT DECREASED [None]
